FAERS Safety Report 19898725 (Version 1)
Quarter: 2021Q3

REPORT INFORMATION
  Report Type: Spontaneous
  Country: US (occurrence: US)
  Receive Date: 20210929
  Receipt Date: 20210929
  Transmission Date: 20211014
  Serious: No
  Sender: FDA-Public Use
  Company Number: US-BAUSCH-BL-2021-032437

PATIENT
  Age: 75 Year
  Sex: Female

DRUGS (3)
  1. OXAZEPAM. [Concomitant]
     Active Substance: OXAZEPAM
     Indication: PRODUCT USED FOR UNKNOWN INDICATION
  2. SYNTHROID [Concomitant]
     Active Substance: LEVOTHYROXINE SODIUM
     Indication: PRODUCT USED FOR UNKNOWN INDICATION
  3. VYZULTA [Suspect]
     Active Substance: LATANOPROSTENE BUNOD
     Indication: GLAUCOMA
     Route: 047
     Dates: start: 202101

REACTIONS (2)
  - Insomnia [Unknown]
  - Anxiety [Unknown]

NARRATIVE: CASE EVENT DATE: 2021
